FAERS Safety Report 16779245 (Version 2)
Quarter: 2021Q1

REPORT INFORMATION
  Report Type: Spontaneous
  Country: US (occurrence: US)
  Receive Date: 20190906
  Receipt Date: 20210222
  Transmission Date: 20210419
  Serious: Yes (Other)
  Sender: FDA-Public Use
  Company Number: US-PFIZER INC-2019382065

PATIENT
  Age: 33 Year
  Sex: Female
  Weight: 83.91 kg

DRUGS (1)
  1. VIAGRA [Suspect]
     Active Substance: SILDENAFIL CITRATE
     Indication: ERECTILE DYSFUNCTION
     Dosage: 25 MG, UNK

REACTIONS (4)
  - Incorrect dose administered [Unknown]
  - Penis disorder [Unknown]
  - Erection increased [Unknown]
  - Intentional product misuse [Unknown]
